FAERS Safety Report 8485857-X (Version None)
Quarter: 2012Q3

REPORT INFORMATION
  Report Type: 
  Country: None (occurrence: None)
  Receive Date: 20120703
  Receipt Date: 20120627
  Transmission Date: 20120928
  Serious: Yes (Hospitalization, Other)
  Sender: FDA-Public Use
  Company Number: PHHY2012GB055178

PATIENT
  Age: 75 Year
  Sex: Male

DRUGS (7)
  1. METFORMIN HCL [Concomitant]
  2. ASPIRIN [Concomitant]
  3. RAMIPRIL [Concomitant]
  4. GLICLAZIDE [Concomitant]
  5. PIOGLITAZONE [Concomitant]
  6. SITAGLIPTIN [Interacting]
  7. ATORVASTATIN [Suspect]

REACTIONS (6)
  - MYOPATHY [None]
  - DRUG INTERACTION [None]
  - MYALGIA [None]
  - OEDEMA PERIPHERAL [None]
  - MUSCULAR WEAKNESS [None]
  - RHABDOMYOLYSIS [None]
